FAERS Safety Report 13184737 (Version 1)
Quarter: 2017Q1

REPORT INFORMATION
  Report Type: Report from Study
  Country: US (occurrence: US)
  Receive Date: 20170203
  Receipt Date: 20170203
  Transmission Date: 20170428
  Serious: Yes (Hospitalization)
  Sender: FDA-Public Use
  Company Number: US-HLSUS-2017-US-000012

PATIENT
  Age: 52 Year
  Sex: Female

DRUGS (9)
  1. BENZOTROPINE [Concomitant]
     Active Substance: BENZTROPINE
     Dosage: 2 MG HS
  2. COLACE [Concomitant]
     Active Substance: DOCUSATE SODIUM
     Dosage: 200 MG TWICE A DAY
  3. MIRALAX [Concomitant]
     Active Substance: POLYETHYLENE GLYCOL 3350
  4. MILK OF MAGNESIA [Concomitant]
     Active Substance: MAGNESIUM HYDROXIDE
  5. CLOZARIL [Suspect]
     Active Substance: CLOZAPINE
     Dates: end: 20160415
  6. SENOKOT [Concomitant]
     Active Substance: SENNOSIDES
     Dosage: TWICE A DAY
  7. ESCALITH CR [Concomitant]
     Dosage: 450 MG
  8. LEVOTHYROXINE. [Concomitant]
     Active Substance: LEVOTHYROXINE
     Dosage: 150 MCG
  9. CHOLICALCIFEROL [Concomitant]
     Dosage: 2000 UNITS

REACTIONS (2)
  - White blood cell count decreased [Recovered/Resolved]
  - Neutropenia [Unknown]

NARRATIVE: CASE EVENT DATE: 20160411
